FAERS Safety Report 4518684-6 (Version None)
Quarter: 2004Q4

REPORT INFORMATION
  Report Type: 
  Country: None (occurrence: None)
  Receive Date: 20041201
  Receipt Date: 20041125
  Transmission Date: 20050328
  Serious: Yes (Life-Threatening, Hospitalization)
  Sender: FDA-Public Use
  Company Number: HQWYE703230NOV04

PATIENT
  Age: 49 Year
  Sex: Male

DRUGS (9)
  1. RAPAMUNE [Suspect]
     Indication: PROPHYLAXIS AGAINST TRANSPLANT REJECTION
     Dosage: 4 MG 1X PER 1 DAY  ORAL
     Route: 048
     Dates: start: 19980925
  2. ZEFFIX (LAMIVUDINE) [Concomitant]
  3. PREDNISOLONE [Concomitant]
  4. MYCOPHENOLATE MOFETIL [Concomitant]
  5. TENORMIN [Concomitant]
  6. LASIX [Concomitant]
  7. ZOCOR [Concomitant]
  8. GLYBURIDE [Concomitant]
  9. AMLODIPINE BESYLATE [Concomitant]

REACTIONS (2)
  - GLIOBLASTOMA [None]
  - IMMUNOSUPPRESSION [None]
